FAERS Safety Report 18194568 (Version 1)
Quarter: 2020Q3

REPORT INFORMATION
  Report Type: Spontaneous
  Country: US (occurrence: US)
  Receive Date: 20200825
  Receipt Date: 20200825
  Transmission Date: 20201103
  Serious: No
  Sender: FDA-Public Use
  Company Number: US-009507513-2008USA010386

PATIENT
  Age: 20 Year
  Sex: Female
  Weight: 53.97 kg

DRUGS (1)
  1. NEXPLANON [Suspect]
     Active Substance: ETONOGESTREL
     Dosage: RIGHT ARM, NON DOMINAT ARM
     Dates: start: 201907, end: 20200819

REACTIONS (3)
  - Vaginal haemorrhage [Unknown]
  - Complication of device removal [Recovered/Resolved]
  - Device placement issue [Recovered/Resolved]

NARRATIVE: CASE EVENT DATE: 201907
